FAERS Safety Report 19583720 (Version 2)
Quarter: 2021Q3

REPORT INFORMATION
  Report Type: Report from Study
  Country: ES (occurrence: ES)
  Receive Date: 20210720
  Receipt Date: 20210917
  Transmission Date: 20211014
  Serious: Yes (Hospitalization)
  Sender: FDA-Public Use
  Company Number: ES-ROCHE-2799085

PATIENT
  Age: 70 Year
  Sex: Male
  Weight: 58 kg

DRUGS (26)
  1. SITAGLIPTIN [Concomitant]
     Active Substance: SITAGLIPTIN
     Indication: DIABETES MELLITUS
     Route: 048
  2. LEVOFLOXACIN. [Concomitant]
     Active Substance: LEVOFLOXACIN
     Indication: RESPIRATORY TRACT INFECTION
     Route: 048
     Dates: start: 20210520, end: 20210527
  3. PLACEBO [Suspect]
     Active Substance: UNSPECIFIED INGREDIENT
     Indication: SMALL CELL LUNG CANCER EXTENSIVE STAGE
     Dosage: 16/MAR/2021, MOST RECENT DOSE
     Route: 042
     Dates: start: 20201203
  4. MAGNESIUM OXIDE. [Concomitant]
     Active Substance: MAGNESIUM OXIDE
     Route: 048
     Dates: start: 20210328, end: 20210328
  5. CARBOPLATIN. [Suspect]
     Active Substance: CARBOPLATIN
     Indication: SMALL CELL LUNG CANCER EXTENSIVE STAGE
     Dosage: 02/FEB/2021, MOST RECENT DOSE (275.56 MG), START DATE OF MOST RECENT DOSE OF STUDY DRUG?PRIOR TO AE/
     Route: 042
     Dates: start: 20201203
  6. AMIODARONE [Concomitant]
     Active Substance: AMIODARONE
     Indication: CONGESTIVE CARDIOMYOPATHY
     Route: 048
     Dates: start: 20210326, end: 20210330
  7. NOVORAPID [Concomitant]
     Active Substance: INSULIN ASPART
     Indication: TYPE 2 DIABETES MELLITUS
     Route: 058
     Dates: start: 20210326, end: 20210330
  8. TINZAPARIN [Concomitant]
     Active Substance: TINZAPARIN
     Indication: PROPHYLAXIS
     Route: 042
     Dates: start: 20210326, end: 20210330
  9. LOPERAMIDE [Concomitant]
     Active Substance: LOPERAMIDE
     Route: 048
     Dates: start: 20210223, end: 20210324
  10. ETOPOSIDE. [Suspect]
     Active Substance: ETOPOSIDE
     Indication: SMALL CELL LUNG CANCER EXTENSIVE STAGE
     Dosage: 02/FEB/2021, MOST RECENT DOSE (120.83 MG), START DATE OF MOST RECENT DOSE OF STUDY DRUG?PRIOR TO AE/
     Route: 042
     Dates: start: 20201203
  11. ATORVASTATIN [Concomitant]
     Active Substance: ATORVASTATIN
     Route: 048
  12. ENOXAPARIN [Concomitant]
     Active Substance: ENOXAPARIN
     Indication: PROPHYLAXIS
     Route: 058
     Dates: start: 2020
  13. OXYCODONE [Concomitant]
     Active Substance: OXYCODONE
     Indication: CHEST PAIN
     Route: 048
     Dates: start: 2020
  14. NOVORAPID [Concomitant]
     Active Substance: INSULIN ASPART
     Indication: TYPE 2 DIABETES MELLITUS
     Dosage: MEDICATION DOSE 100 OTHER
     Route: 058
     Dates: start: 20210603, end: 20210618
  15. BISOPROLOL [Concomitant]
     Active Substance: BISOPROLOL
     Indication: CONGESTIVE CARDIOMYOPATHY
     Route: 048
  16. FUROSEMIDE. [Concomitant]
     Active Substance: FUROSEMIDE
     Route: 048
  17. TRIMETHOPRIM. [Concomitant]
     Active Substance: TRIMETHOPRIM
     Indication: INFECTION PROPHYLAXIS
     Route: 048
     Dates: start: 20210326
  18. ATEZOLIZUMAB. [Suspect]
     Active Substance: ATEZOLIZUMAB
     Indication: SMALL CELL LUNG CANCER EXTENSIVE STAGE
     Dosage: ON 16/MAR/2021, MOST RECENT DOSE AT 1200 MG RECEIVED PRIOR TO ONSET OF AE AND SAE. START DATE OF MOS
     Route: 042
     Dates: start: 20201203
  19. ENALAPRIL [Concomitant]
     Active Substance: ENALAPRIL
     Indication: CONGESTIVE CARDIOMYOPATHY
     Route: 048
  20. ENOXAPARIN [Concomitant]
     Active Substance: ENOXAPARIN
     Route: 058
     Dates: start: 20210326, end: 20210326
  21. NALOXONE [Concomitant]
     Active Substance: NALOXONE
     Indication: CHEST PAIN
     Route: 048
     Dates: start: 2020
  22. SULFAMETHOXAZOLE [Concomitant]
     Active Substance: SULFAMETHOXAZOLE
     Indication: INFECTION PROPHYLAXIS
     Route: 048
     Dates: start: 20210326
  23. PARACETAMOL [Concomitant]
     Active Substance: ACETAMINOPHEN
     Indication: PAIN PROPHYLAXIS
     Route: 042
     Dates: start: 20210603, end: 20210607
  24. OMEPRAZOLE. [Concomitant]
     Active Substance: OMEPRAZOLE
     Route: 048
  25. AMIODARONE [Concomitant]
     Active Substance: AMIODARONE
     Route: 048
     Dates: start: 20210603, end: 20210618
  26. LOPERAMIDE [Concomitant]
     Active Substance: LOPERAMIDE
     Indication: DIARRHOEA
     Route: 048
     Dates: start: 20210604, end: 20210616

REACTIONS (2)
  - Diarrhoea [Recovered/Resolved]
  - Immune-mediated enterocolitis [Recovered/Resolved]

NARRATIVE: CASE EVENT DATE: 20210325
